FAERS Safety Report 5472329-X (Version None)
Quarter: 2007Q3

REPORT INFORMATION
  Report Type: 
  Country: None (occurrence: None)
  Receive Date: 20070927
  Receipt Date: 20070920
  Transmission Date: 20080115
  Serious: Yes (Hospitalization)
  Sender: FDA-Public Use
  Company Number: 2007-04304

PATIENT
  Age: 17 Year
  Sex: Male

DRUGS (4)
  1. DEXAMETHASONE [Suspect]
     Indication: CHEMOTHERAPY
  2. DOXORUBICIN HCL [Suspect]
     Indication: CHEMOTHERAPY
  3. POLYETHYLENE GLYCOL-ASPARAGINASE [Concomitant]
  4. VINCRISTINE [Concomitant]

REACTIONS (1)
  - DIVERTICULAR PERFORATION [None]
